FAERS Safety Report 17393686 (Version 6)
Quarter: 2021Q2

REPORT INFORMATION
  Report Type: Spontaneous
  Country: US (occurrence: US)
  Receive Date: 20200209
  Receipt Date: 20210603
  Transmission Date: 20210716
  Serious: Yes (Other)
  Sender: FDA-Public Use
  Company Number: NVSC2020US034503

PATIENT
  Sex: Female

DRUGS (3)
  1. MEKINIST [Suspect]
     Active Substance: TRAMETINIB DIMETHYL SULFOXIDE
     Indication: BRAIN NEOPLASM MALIGNANT
     Dosage: 0.5 MG, QD
     Route: 048
     Dates: start: 20200107
  2. MEKINIST [Suspect]
     Active Substance: TRAMETINIB DIMETHYL SULFOXIDE
     Dosage: 5 MG, QD
     Route: 048
     Dates: start: 202001
  3. TAFINLAR [Suspect]
     Active Substance: DABRAFENIB MESYLATE
     Indication: PRODUCT USED FOR UNKNOWN INDICATION
     Dosage: UNK
     Route: 065

REACTIONS (8)
  - Rash [Unknown]
  - Gait disturbance [Unknown]
  - Rash [Recovered/Resolved]
  - Epistaxis [Unknown]
  - Inappropriate schedule of product administration [Unknown]
  - Optic glioma [Unknown]
  - Visual impairment [Unknown]
  - Tumour marker decreased [Unknown]
